FAERS Safety Report 18839563 (Version 3)
Quarter: 2021Q2

REPORT INFORMATION
  Report Type: Report from Study
  Country: CA (occurrence: CA)
  Receive Date: 20210203
  Receipt Date: 20210406
  Transmission Date: 20210717
  Serious: Yes (Hospitalization)
  Sender: FDA-Public Use
  Company Number: CA-EXELIXIS-CABO-20034560

PATIENT
  Age: 88 Year
  Sex: Male

DRUGS (14)
  1. LIPITOR [Concomitant]
     Active Substance: ATORVASTATIN CALCIUM
     Dosage: UNK
  2. CABOMETYX [Suspect]
     Active Substance: CABOZANTINIB S-MALATE
     Dosage: 60 MG, QD
     Route: 048
     Dates: start: 20210121
  3. CABOMETYX [Suspect]
     Active Substance: CABOZANTINIB S-MALATE
     Dosage: 60 MG, QD
     Route: 048
     Dates: start: 20210329
  4. VOTRIENT [Concomitant]
     Active Substance: PAZOPANIB HYDROCHLORIDE
     Dosage: UNK
  5. CABOMETYX [Suspect]
     Active Substance: CABOZANTINIB S-MALATE
     Indication: RENAL CELL CARCINOMA
     Dosage: 60 MG, QD
     Route: 048
     Dates: start: 20200630
  6. XARELTO [Concomitant]
     Active Substance: RIVAROXABAN
     Dosage: UNK
  7. METOPROLOL. [Concomitant]
     Active Substance: METOPROLOL
     Dosage: UNK
  8. D TABS [Concomitant]
     Active Substance: CHOLECALCIFEROL
     Dosage: UNK
  9. GRASTOFIL [Concomitant]
     Active Substance: FILGRASTIM
     Dosage: UNK
  10. CABOMETYX [Suspect]
     Active Substance: CABOZANTINIB S-MALATE
     Dosage: 60 MG, QD (10 DAYS ON AND 5 DAYS OFF )
     Route: 048
     Dates: end: 20201112
  11. ALENDRONATE [Concomitant]
     Active Substance: ALENDRONATE SODIUM
     Dosage: UNK
  12. CALCIUM [Concomitant]
     Active Substance: CALCIUM
     Dosage: UNK
  13. SYNTHROID [Concomitant]
     Active Substance: LEVOTHYROXINE SODIUM
     Dosage: UNK
  14. CABOMETYX [Suspect]
     Active Substance: CABOZANTINIB S-MALATE
     Dosage: 60 MG, QD
     Route: 048
     Dates: start: 20210302, end: 202103

REACTIONS (15)
  - Impaired healing [Not Recovered/Not Resolved]
  - Oral infection [Not Recovered/Not Resolved]
  - Blood pressure increased [Unknown]
  - Tooth disorder [Unknown]
  - Musculoskeletal chest pain [Unknown]
  - Inappropriate schedule of product administration [Unknown]
  - Diarrhoea [Recovered/Resolved]
  - Wound haemorrhage [Recovered/Resolved]
  - Blood electrolytes abnormal [Unknown]
  - Skin ulcer [Recovered/Resolved]
  - Depressed mood [Unknown]
  - Dyspnoea [Unknown]
  - Disorientation [Unknown]
  - Post procedural infection [Unknown]
  - Asthenia [Unknown]

NARRATIVE: CASE EVENT DATE: 20210114
